FAERS Safety Report 9251600 (Version 1)
Quarter: 2013Q1

REPORT INFORMATION
  Report Type: Spontaneous
  Country: US (occurrence: None)
  Receive Date: 20130305
  Receipt Date: 20130305
  Transmission Date: 20140127
  Serious: Yes (Other)
  Sender: FDA-Public Use
  Company Number: 163-21880-12092674

PATIENT
  Age: 60 Year
  Sex: Male
  Weight: 171.01 kg

DRUGS (1)
  1. REVLIMID [Suspect]
     Indication: PLASMA CELL MYELOMA
     Dosage: 21 IN 21 D
     Route: 048
     Dates: start: 20101216, end: 20110916

REACTIONS (2)
  - Influenza like illness [None]
  - Full blood count decreased [None]
